FAERS Safety Report 5155118-5 (Version None)
Quarter: 2006Q4

REPORT INFORMATION
  Report Type: 
  Country: None (occurrence: None)
  Receive Date: 20061121
  Receipt Date: 20061108
  Transmission Date: 20070319
  Serious: Yes (Other)
  Sender: FDA-Public Use
  Company Number: US-ELI_LILLY_AND_COMPANY-US200611001746

PATIENT
  Age: 66 Year
  Sex: Female

DRUGS (8)
  1. FORTEO [Suspect]
     Indication: OSTEOPOROSIS
     Dosage: UNK, UNK
     Dates: start: 20060709, end: 20061109
  2. HYZAAR [Concomitant]
     Dates: start: 20020101
  3. ATENOLOL [Concomitant]
     Dates: start: 20050101
  4. ACIPHEX [Concomitant]
  5. CALCIUM [Concomitant]
  6. ASCORBIC ACID [Concomitant]
  7. VITAMIN E [Concomitant]
  8. CRESTOR [Concomitant]
     Dates: start: 20050101

REACTIONS (7)
  - CHAPPED LIPS [None]
  - FEELING ABNORMAL [None]
  - PRURITUS GENERALISED [None]
  - RASH [None]
  - SHOCK [None]
  - SKIN DISORDER [None]
  - THROAT TIGHTNESS [None]
